FAERS Safety Report 7646715-3 (Version None)
Quarter: 2011Q3

REPORT INFORMATION
  Report Type: 
  Country: None (occurrence: None)
  Receive Date: 20110801
  Receipt Date: 20110720
  Transmission Date: 20111222
  Serious: Yes (Hospitalization)
  Sender: FDA-Public Use
  Company Number: US-NOVOPROD-331429

PATIENT
  Sex: Male
  Weight: 114.74 kg

DRUGS (1)
  1. LIRAGLUTIDE FLEXPEN [Suspect]
     Indication: TYPE 2 DIABETES MELLITUS
     Dosage: 1.8 MG, QD
     Route: 058
     Dates: start: 20110623

REACTIONS (4)
  - HYPOTENSION [None]
  - DEHYDRATION [None]
  - RENAL FAILURE ACUTE [None]
  - DIARRHOEA [None]
